FAERS Safety Report 13660146 (Version 1)
Quarter: 2017Q2

REPORT INFORMATION
  Report Type: Report from Study
  Country: US (occurrence: US)
  Receive Date: 20170616
  Receipt Date: 20170616
  Transmission Date: 20170830
  Serious: Yes (Hospitalization)
  Sender: FDA-Public Use
  Company Number: PHHO2017US009116

PATIENT
  Age: 64 Year
  Sex: Female
  Weight: 94.8 kg

DRUGS (2)
  1. TRAMETINIB [Suspect]
     Active Substance: TRAMETINIB
     Indication: MALIGNANT MELANOMA
     Dosage: 2 MG, QD (TOTAL DOSE 56 MG)
     Route: 048
     Dates: start: 20170105, end: 20170427
  2. GSK2118436 [Suspect]
     Active Substance: DABRAFENIB
     Indication: MALIGNANT MELANOMA
     Dosage: 150 MG, BID (TOTAL DOSE 8400 MG)
     Route: 048
     Dates: start: 20170105, end: 20170427

REACTIONS (1)
  - Urinary tract infection [Recovering/Resolving]

NARRATIVE: CASE EVENT DATE: 20170420
